FAERS Safety Report 13351751 (Version 1)
Quarter: 2017Q1

REPORT INFORMATION
  Report Type: Spontaneous
  Country: NL (occurrence: NL)
  Receive Date: 20170320
  Receipt Date: 20170320
  Transmission Date: 20170429
  Serious: Yes (Hospitalization)
  Sender: FDA-Public Use
  Company Number: NL-TEVA-748814ROM

PATIENT
  Age: 12 Year
  Sex: Male

DRUGS (6)
  1. RITUXIMAB [Suspect]
     Active Substance: RITUXIMAB
     Indication: HASHIMOTO^S ENCEPHALOPATHY
     Dosage: 375 MG/ M2 WEEKLY FOR FOUR WEEKS
     Route: 065
  2. METHYLPREDNISOLONE. [Concomitant]
     Active Substance: METHYLPREDNISOLONE
     Indication: HASHIMOTO^S ENCEPHALOPATHY
     Dosage: 15 MG/KG/DAY FOR THREE CONSECUTIVE DAYS
     Route: 065
  3. PREDNISONE. [Suspect]
     Active Substance: PREDNISONE
     Indication: HASHIMOTO^S ENCEPHALOPATHY
     Dosage: 1 MG/KG/DAY
     Route: 048
  4. PREDNISONE. [Suspect]
     Active Substance: PREDNISONE
     Indication: HASHIMOTO^S ENCEPHALOPATHY
     Dosage: 20 MG/DAY
     Route: 048
  5. PREDNISONE. [Suspect]
     Active Substance: PREDNISONE
     Indication: HASHIMOTO^S ENCEPHALOPATHY
     Dosage: 5 MG/DAY EVERY OTHER DAY
     Route: 048
  6. PREDNISONE. [Suspect]
     Active Substance: PREDNISONE
     Indication: HASHIMOTO^S ENCEPHALOPATHY
     Dosage: 7.5 MG/DAY
     Route: 048

REACTIONS (5)
  - Hypertension [Unknown]
  - Cushing^s syndrome [Unknown]
  - Orchitis [Unknown]
  - Ureaplasma infection [Unknown]
  - Hypogammaglobulinaemia [Unknown]
